FAERS Safety Report 9276670 (Version 2)
Quarter: 2013Q2

REPORT INFORMATION
  Report Type: Spontaneous
  Country: FR (occurrence: FR)
  Receive Date: 20130507
  Receipt Date: 20130625
  Transmission Date: 20140414
  Serious: Yes (Disabling, Other)
  Sender: FDA-Public Use
  Company Number: PHHY2013FR043719

PATIENT
  Age: 69 Year
  Sex: Female
  Weight: 36 kg

DRUGS (5)
  1. AFINITOR [Suspect]
     Indication: BREAST CANCER METASTATIC
     Dosage: 10 MG, QD
     Route: 048
     Dates: start: 20130110
  2. AROMASINE [Suspect]
     Dosage: 25 MG, QD
     Route: 048
     Dates: start: 20130110
  3. FLUOXETINE [Concomitant]
     Route: 048
     Dates: start: 1993
  4. LEVOTHYROX [Concomitant]
     Dosage: 100 UG, QD
     Dates: start: 2008
  5. OMEPRAZOLE [Concomitant]
     Dosage: 20 MG, QD
     Dates: start: 2007

REACTIONS (5)
  - Cataract nuclear [Recovering/Resolving]
  - Visual acuity reduced [Unknown]
  - Vision blurred [Unknown]
  - Migraine [Unknown]
  - Hypertension [Unknown]
